FAERS Safety Report 9299902 (Version 1)
Quarter: 2013Q1

REPORT INFORMATION
  Report Type: Spontaneous
  Country: US (occurrence: None)
  Receive Date: 20121227
  Receipt Date: 20121227
  Transmission Date: 20140127
  Serious: No
  Sender: FDA-Public Use
  Company Number: PHEH2012US023194

PATIENT
  Age: 10 Year
  Sex: Male

DRUGS (5)
  1. AFINITOR [Suspect]
     Indication: TUBEROUS SCLEROSIS
     Route: 048
     Dates: start: 20110929
  2. DEPAKOTE (VALPROATE SEMISODIUM) [Concomitant]
  3. KEPPRA (LEVETIRACETAM) [Concomitant]
  4. ALLEGRA [Concomitant]
  5. SINGULAIR [Concomitant]

REACTIONS (1)
  - Diarrhoea [None]
